FAERS Safety Report 4337533-2 (Version None)
Quarter: 2004Q2

REPORT INFORMATION
  Report Type: 
  Country: None (occurrence: None)
  Receive Date: 20040413
  Receipt Date: 20040322
  Transmission Date: 20050107
  Serious: Yes (Hospitalization)
  Sender: FDA-Public Use
  Company Number: JP-GLAXOSMITHKLINE-B0328121A

PATIENT
  Age: 71 Year
  Sex: Female

DRUGS (16)
  1. VALTREX [Suspect]
     Indication: HERPES SIMPLEX
     Dosage: 500MG TWICE PER DAY
     Route: 048
     Dates: start: 20040302, end: 20040306
  2. LINCOMYCIN HYDROCHLORIDE [Suspect]
     Dosage: 1200MG PER DAY
     Route: 042
     Dates: start: 20040313
  3. COFMESIN [Concomitant]
     Dosage: 2G PER DAY
     Route: 048
     Dates: start: 20040227, end: 20040301
  4. CYANOCOBALAMIN [Concomitant]
     Dosage: 20ML PER DAY
     Route: 042
     Dates: start: 20040313
  5. PRIMPERAN INJ [Concomitant]
     Route: 065
  6. LYSOZYME CHLORIDE [Concomitant]
     Dosage: 3U PER DAY
     Route: 048
     Dates: start: 20040227, end: 20040301
  7. AMBROXOL HYDROCHLORIDE [Concomitant]
     Dosage: 45MG PER DAY
     Route: 048
     Dates: start: 20040227, end: 20040301
  8. CIPROFLOXACIN HYDROCHLORIDE [Concomitant]
     Dosage: 600MG PER DAY
     Route: 048
     Dates: start: 20040227, end: 20040301
  9. ALDIOXA [Concomitant]
     Dosage: .8G PER DAY
     Route: 048
     Dates: start: 20040227, end: 20040301
  10. ALDIOXA [Concomitant]
     Dosage: 1G PER DAY
     Route: 048
     Dates: start: 20040227, end: 20040301
  11. LOXOPROFEN SODIUM [Concomitant]
     Dosage: 180MG PER DAY
     Route: 048
     Dates: start: 20040227, end: 20040301
  12. LOXOPROFEN SODIUM [Concomitant]
     Dosage: 500ML PER DAY
     Route: 042
     Dates: start: 20040313
  13. METOCLOPRAMIDE [Concomitant]
     Dosage: 1U PER DAY
     Route: 042
     Dates: start: 20040313
  14. BROMHEXINE HYDROCHLORIDE [Concomitant]
     Dosage: 1U PER DAY
     Route: 042
     Dates: start: 20040313
  15. CYANOCOBALAMIN [Concomitant]
     Dosage: 1U PER DAY
     Route: 042
     Dates: start: 20040313
  16. DEXAMETHASONE SODIUM PHOSPHATE [Concomitant]
     Dosage: 3.8MG PER DAY
     Route: 042
     Dates: start: 20040313

REACTIONS (6)
  - ALANINE AMINOTRANSFERASE INCREASED [None]
  - ASPARTATE AMINOTRANSFERASE INCREASED [None]
  - ECZEMA [None]
  - HEPATITIS ACUTE [None]
  - MALAISE [None]
  - SWELLING FACE [None]
